FAERS Safety Report 5150082-7 (Version None)
Quarter: 2006Q4

REPORT INFORMATION
  Report Type: 
  Country: None (occurrence: None)
  Receive Date: 20061113
  Receipt Date: 20060821
  Transmission Date: 20070319
  Serious: Yes (Hospitalization)
  Sender: FDA-Public Use
  Company Number: FR-ABBOTT-06P-056-0341336-00

PATIENT
  Sex: Male

DRUGS (12)
  1. KALETRA [Suspect]
     Indication: HIV TEST POSITIVE
     Route: 048
     Dates: start: 20060728
  2. ISONIAZID [Suspect]
     Indication: TUBERCULOSIS
     Dates: start: 20050512, end: 20060727
  3. PYRAZINAMIDE [Suspect]
     Indication: TUBERCULOSIS
     Dates: start: 20050512, end: 20060727
  4. RIFATER [Suspect]
     Indication: TUBERCULOSIS
     Dates: start: 20050512, end: 20060727
  5. EFAVIRENZ [Suspect]
     Indication: HIV TEST POSITIVE
     Route: 048
     Dates: start: 20060630, end: 20060727
  6. TRUVADA [Suspect]
     Indication: HIV TEST POSITIVE
     Route: 048
     Dates: start: 20060630, end: 20060802
  7. MORPHINE [Suspect]
     Indication: DIARRHOEA
     Dates: start: 20060707, end: 20060726
  8. MORPHINE [Suspect]
     Indication: PAIN
     Dates: start: 20060726, end: 20060727
  9. MOXIFLOXACIN HYDROCHLORIDE [Suspect]
     Indication: DRUG USE FOR UNKNOWN INDICATION
     Dates: start: 20060729
  10. BACTRIM [Suspect]
     Indication: ANTIFUNGAL PROPHYLAXIS
     Dates: start: 20060511
  11. VALGANCICLOVIR HCL [Suspect]
     Indication: CYTOMEGALOVIRUS INFECTION
     Dates: start: 20060512, end: 20060821
  12. LAMIVUDINE + ZIDOVUDINE [Suspect]
     Indication: HIV INFECTION
     Dates: start: 20060802, end: 20060828

REACTIONS (4)
  - HYPOMAGNESAEMIA [None]
  - PANCYTOPENIA [None]
  - PROTEINURIA [None]
  - RENAL FAILURE [None]
